FAERS Safety Report 10073685 (Version 3)
Quarter: 2014Q2

REPORT INFORMATION
  Report Type: Spontaneous
  Country: US (occurrence: US)
  Receive Date: 20140411
  Receipt Date: 20140418
  Transmission Date: 20141212
  Serious: Yes (Death)
  Sender: FDA-Public Use
  Company Number: US-INCYTE CORPORATION-2014IN000771

PATIENT
  Age: 75 Year
  Sex: Male

DRUGS (4)
  1. JAKAFI [Suspect]
     Indication: MYELOFIBROSIS
     Dosage: 5 MG, QD
     Route: 048
     Dates: start: 20140303
  2. JAKAFI [Suspect]
     Indication: MYELODYSPLASTIC SYNDROME
     Dosage: 5 MG, BID
  3. JAKAFI [Suspect]
     Indication: SPLENOMEGALY
     Dosage: QD
     Route: 048
  4. NITROGLYCERIN [Concomitant]

REACTIONS (3)
  - Death [Fatal]
  - Chest discomfort [Unknown]
  - Transfusion [Unknown]
